FAERS Safety Report 17260013 (Version 2)
Quarter: 2020Q1

REPORT INFORMATION
  Report Type: Spontaneous
  Country: US (occurrence: US)
  Receive Date: 20200111
  Receipt Date: 20200218
  Transmission Date: 20200409
  Serious: Yes (Death, Life-Threatening, Hospitalization, Other)
  Sender: FDA-Public Use
  Company Number: US-AMGEN-USASP2020002015

PATIENT
  Age: 68 Year
  Sex: Female

DRUGS (1)
  1. KYPROLIS [Suspect]
     Active Substance: CARFILZOMIB
     Indication: PLASMA CELL MYELOMA
     Dosage: UNK
     Route: 065
     Dates: start: 201912, end: 20200103

REACTIONS (5)
  - Acute respiratory distress syndrome [Unknown]
  - Cardiac failure congestive [Fatal]
  - Renal failure [Unknown]
  - Off label use [Unknown]
  - Hepatic failure [Unknown]

NARRATIVE: CASE EVENT DATE: 201912
